FAERS Safety Report 5126400-2 (Version None)
Quarter: 2006Q3

REPORT INFORMATION
  Report Type: 
  Country: None (occurrence: None)
  Receive Date: 20060830
  Receipt Date: 20060119
  Transmission Date: 20061208
  Serious: Yes (Hospitalization)
  Sender: FDA-Public Use
  Company Number: 200512303BWH

PATIENT
  Age: 45 Year
  Sex: Female

DRUGS (3)
  1. TRASYLOL [Suspect]
     Indication: HEART VALVE REPLACEMENT
     Dosage: SEE IMAGE
     Route: 042
  2. PROTAMINE SULFATE [Concomitant]
  3. HEPARIN [Concomitant]

REACTIONS (1)
  - PULMONARY OEDEMA [None]
